FAERS Safety Report 4518429-X (Version None)
Quarter: 2004Q4

REPORT INFORMATION
  Report Type: 
  Country: None (occurrence: None)
  Receive Date: 20041202
  Receipt Date: 20041122
  Transmission Date: 20050328
  Serious: Yes (Hospitalization)
  Sender: FDA-Public Use
  Company Number: TAP2004Q01523

PATIENT
  Sex: Male

DRUGS (1)
  1. LUPRON DEPOT [Suspect]
     Dosage: 7.5 MG (7.5 MG,) INTRAMUSCULAR
     Route: 030

REACTIONS (3)
  - AGITATION [None]
  - CONFUSIONAL STATE [None]
  - DELIRIUM [None]
